FAERS Safety Report 4668361-6 (Version None)
Quarter: 2005Q2

REPORT INFORMATION
  Report Type: 
  Country: None (occurrence: None)
  Receive Date: 20050523
  Receipt Date: 20041029
  Transmission Date: 20051028
  Serious: Yes (Hospitalization, Disabling)
  Sender: FDA-Public Use
  Company Number: PHFR2004GB04056

PATIENT
  Age: 86 Year
  Sex: Female

DRUGS (4)
  1. PAMIDRONATE DISODIUM [Suspect]
     Indication: MULTIPLE MYELOMA
  2. PREDNISOLONE [Concomitant]
     Indication: MULTIPLE MYELOMA
     Dosage: 20 MG INTERMITTENTLY
     Route: 048
  3. EPREX [Concomitant]
     Indication: MULTIPLE MYELOMA
     Dosage: 4000 IU, QW3
     Route: 058
  4. ZOMETA [Suspect]
     Indication: MULTIPLE MYELOMA
     Dosage: 4 MG, QMO
     Route: 042

REACTIONS (2)
  - ORAL PAIN [None]
  - OSTEONECROSIS [None]
